FAERS Safety Report 20523384 (Version 13)
Quarter: 2023Q4

REPORT INFORMATION
  Report Type: Spontaneous
  Country: CA (occurrence: CA)
  Receive Date: 20220228
  Receipt Date: 20231219
  Transmission Date: 20240109
  Serious: Yes (Other)
  Sender: FDA-Public Use
  Company Number: CA-CELLTRION INC.-2021CA010735

PATIENT

DRUGS (41)
  1. INFLECTRA [Suspect]
     Active Substance: INFLIXIMAB-DYYB
     Indication: Crohn^s disease
     Dosage: 300 MG FREQUENCY: 8 WEEK
     Route: 042
     Dates: start: 20210202
  2. INFLECTRA [Suspect]
     Active Substance: INFLIXIMAB-DYYB
     Indication: Colitis ulcerative
     Dosage: 300 MG FREQUENCY: 8 WEEK, (WEEK 2)
     Route: 042
     Dates: start: 20210216
  3. INFLECTRA [Suspect]
     Active Substance: INFLIXIMAB-DYYB
     Dosage: 300 MG FREQUENCY: 8 WEEK
     Route: 042
     Dates: start: 20210316
  4. INFLECTRA [Suspect]
     Active Substance: INFLIXIMAB-DYYB
     Dosage: 300 MG FREQUENCY: 8 WEEK
     Route: 042
     Dates: start: 20210317
  5. INFLECTRA [Suspect]
     Active Substance: INFLIXIMAB-DYYB
     Dosage: 300 MG FREQUENCY: 8 WEEK, (WEEK 0)
     Route: 042
     Dates: start: 20210512
  6. INFLECTRA [Suspect]
     Active Substance: INFLIXIMAB-DYYB
     Dosage: 300 MG FREQUENCY: 8 WEEK, (WEEK 0)
     Route: 042
     Dates: start: 20210901
  7. INFLECTRA [Suspect]
     Active Substance: INFLIXIMAB-DYYB
     Dosage: 300 MG FREQUENCY: 8 WEEK, (WEEK 0)
     Route: 042
     Dates: start: 20211027
  8. INFLECTRA [Suspect]
     Active Substance: INFLIXIMAB-DYYB
     Dosage: 300 MG FREQUENCY: 8 WEEK, (WEEK 0)
     Route: 042
     Dates: start: 20211222
  9. INFLECTRA [Suspect]
     Active Substance: INFLIXIMAB-DYYB
     Dosage: 300 MG FREQUENCY: 8 WEEK, (WEEK 0)
     Route: 042
     Dates: start: 20220216
  10. INFLECTRA [Suspect]
     Active Substance: INFLIXIMAB-DYYB
     Dosage: 300 MG FREQUENCY: 8 WEEK, (WEEK 0)
     Route: 042
     Dates: start: 20220216
  11. INFLECTRA [Suspect]
     Active Substance: INFLIXIMAB-DYYB
     Dosage: 300 MG, FREQUENCY: 8 WEEK, (WEEK 0)
     Route: 042
     Dates: start: 20220413
  12. INFLECTRA [Suspect]
     Active Substance: INFLIXIMAB-DYYB
     Dosage: 300 MG, FREQUENCY: 8 WEEKS
     Route: 042
     Dates: start: 20220608
  13. INFLECTRA [Suspect]
     Active Substance: INFLIXIMAB-DYYB
     Dosage: 300 MG, FREQUENCY: 8 WEEKS
     Route: 042
     Dates: start: 20220608
  14. INFLECTRA [Suspect]
     Active Substance: INFLIXIMAB-DYYB
     Dosage: 300 MG, FREQUENCY: 8 WEEKS
     Route: 042
     Dates: start: 20220803
  15. INFLECTRA [Suspect]
     Active Substance: INFLIXIMAB-DYYB
     Dosage: 300 MG, FREQUENCY: 8 WEEKS
     Route: 042
     Dates: start: 20220803
  16. INFLECTRA [Suspect]
     Active Substance: INFLIXIMAB-DYYB
     Dosage: 300 MG, FREQUENCY: 8 WEEKS
     Route: 042
     Dates: start: 20220803
  17. INFLECTRA [Suspect]
     Active Substance: INFLIXIMAB-DYYB
     Dosage: 300 MG, FREQUENCY: 8 WEEKS
     Route: 042
     Dates: start: 20220803
  18. INFLECTRA [Suspect]
     Active Substance: INFLIXIMAB-DYYB
     Dosage: 300 MG, FREQUENCY: 8 WEEKS
     Route: 042
     Dates: start: 20221005
  19. INFLECTRA [Suspect]
     Active Substance: INFLIXIMAB-DYYB
     Dosage: 300 MG, FREQUENCY: 8 WEEKS
     Route: 042
     Dates: start: 20221005
  20. INFLECTRA [Suspect]
     Active Substance: INFLIXIMAB-DYYB
     Dosage: 300 MG, FREQUENCY: 8 WEEKS
     Route: 042
     Dates: start: 20221005
  21. INFLECTRA [Suspect]
     Active Substance: INFLIXIMAB-DYYB
     Dosage: 300 MG, FREQUENCY: 8 WEEKS
     Route: 042
     Dates: start: 20221201
  22. INFLECTRA [Suspect]
     Active Substance: INFLIXIMAB-DYYB
     Dosage: 300 MG, FREQUENCY: 8 WEEKS
     Route: 042
     Dates: start: 20221201
  23. INFLECTRA [Suspect]
     Active Substance: INFLIXIMAB-DYYB
     Dosage: 300 MG, FREQUENCY: 8 WEEKS
     Route: 042
     Dates: start: 20221201
  24. INFLECTRA [Suspect]
     Active Substance: INFLIXIMAB-DYYB
     Dosage: 300 MG, FREQUENCY: 8 WEEKS
     Route: 042
     Dates: start: 20230125
  25. INFLECTRA [Suspect]
     Active Substance: INFLIXIMAB-DYYB
     Dosage: 300 MG, FREQUENCY: 8 WEEKS
     Route: 042
     Dates: start: 20230125
  26. INFLECTRA [Suspect]
     Active Substance: INFLIXIMAB-DYYB
     Dosage: 300 MG, FREQUENCY: 8 WEEKS
     Route: 042
     Dates: start: 20230125
  27. INFLECTRA [Suspect]
     Active Substance: INFLIXIMAB-DYYB
     Dosage: 300 MG, FREQUENCY: 8 WEEKS
     Route: 042
     Dates: start: 20230417
  28. INFLECTRA [Suspect]
     Active Substance: INFLIXIMAB-DYYB
     Dosage: 300 MG, FREQUENCY: 8 WEEKS
     Route: 042
     Dates: start: 20230417
  29. INFLECTRA [Suspect]
     Active Substance: INFLIXIMAB-DYYB
     Dosage: 300 MG, FREQUENCY: 8 WEEKS
     Route: 042
     Dates: start: 20230417
  30. INFLECTRA [Suspect]
     Active Substance: INFLIXIMAB-DYYB
     Dosage: 300 MG, FREQUENCY: 8 WEEKS
     Route: 042
     Dates: start: 20230417
  31. INFLECTRA [Suspect]
     Active Substance: INFLIXIMAB-DYYB
     Dosage: 300 MG, FREQUENCY: 8 WEEKS
     Route: 042
     Dates: start: 20230417
  32. INFLECTRA [Suspect]
     Active Substance: INFLIXIMAB-DYYB
     Dosage: 300 MG, FREQUENCY: 8 WEEKS
     Route: 042
     Dates: start: 20230614
  33. INFLECTRA [Suspect]
     Active Substance: INFLIXIMAB-DYYB
     Dosage: 300 MG, FREQUENCY: 8 WEEKS
     Route: 042
     Dates: start: 20230809
  34. INFLECTRA [Suspect]
     Active Substance: INFLIXIMAB-DYYB
     Dosage: 300 MG, EVERY 8 WEEKS
     Route: 042
     Dates: start: 20231011
  35. INFLECTRA [Suspect]
     Active Substance: INFLIXIMAB-DYYB
     Dosage: 300 MG, EVERY 8 WEEKS
     Route: 042
     Dates: start: 20231206
  36. INFLECTRA [Suspect]
     Active Substance: INFLIXIMAB-DYYB
     Dosage: 300 MG, EVERY 8 WEEKS
     Route: 042
     Dates: start: 20231206
  37. PREDNISONE [Concomitant]
     Active Substance: PREDNISONE
     Dosage: 35 MG, DAILY
     Route: 048
     Dates: start: 202102, end: 202103
  38. RAMIPRIL [Concomitant]
     Active Substance: RAMIPRIL
     Indication: Hypertension
     Dosage: UNK, 1X/DAY (DAILY)
     Route: 048
  39. RAMIPRIL [Concomitant]
     Active Substance: RAMIPRIL
     Dosage: UNK, DAILY
     Route: 048
  40. SPIRONOLACTONE [Concomitant]
     Active Substance: SPIRONOLACTONE
     Indication: Hypertension
     Dosage: UNK UNK, 1X/DAY (DAILY)
     Route: 048
  41. SPIRONOLACTONE [Concomitant]
     Active Substance: SPIRONOLACTONE
     Dosage: UNK, DAILY
     Route: 048

REACTIONS (15)
  - Nephrolithiasis [Unknown]
  - Weight increased [Unknown]
  - Cellulitis [Unknown]
  - Furuncle [Recovering/Resolving]
  - Endometriosis [Unknown]
  - Hypertension [Unknown]
  - Psoriasis [Not Recovered/Not Resolved]
  - Erythema [Unknown]
  - Alopecia [Not Recovered/Not Resolved]
  - COVID-19 [Not Recovered/Not Resolved]
  - Infected naevus [Recovered/Resolved]
  - Purulent discharge [Unknown]
  - Skin infection [Unknown]
  - Condition aggravated [Not Recovered/Not Resolved]
  - Off label use [Unknown]

NARRATIVE: CASE EVENT DATE: 20210316
